FAERS Safety Report 11746451 (Version 1)
Quarter: 2015Q4

REPORT INFORMATION
  Report Type: Spontaneous
  Country: US (occurrence: None)
  Receive Date: 20151116
  Receipt Date: 20151116
  Transmission Date: 20160304
  Serious: No
  Sender: FDA-Public Use
  Company Number: None

PATIENT
  Age: 69 Year
  Sex: Female

DRUGS (1)
  1. TECFIDERA [Suspect]
     Active Substance: DIMETHYL FUMARATE
     Indication: CONGENITAL MITRAL VALVE STENOSIS
     Route: 048
     Dates: start: 20150804, end: 20151008

REACTIONS (2)
  - Spinal disorder [None]
  - Pain [None]

NARRATIVE: CASE EVENT DATE: 20151008
